FAERS Safety Report 8607302-3 (Version None)
Quarter: 2012Q3

REPORT INFORMATION
  Report Type: 
  Country: None (occurrence: None)
  Receive Date: 20120807
  Receipt Date: 20120725
  Transmission Date: 20120928
  Serious: Yes (Other)
  Sender: FDA-Public Use
  Company Number: 1361714

PATIENT
  Age: 50 Year
  Sex: Female
  Weight: 88.9 kg

DRUGS (1)
  1. METHOTREXATE [Suspect]
     Indication: PRODUCT USED FOR UNKNOWN INDICATION

REACTIONS (4)
  - MIGRAINE [None]
  - PYREXIA [None]
  - LYMPHADENOPATHY [None]
  - MALAISE [None]
